FAERS Safety Report 16822211 (Version 1)
Quarter: 2019Q3

REPORT INFORMATION
  Report Type: Spontaneous
  Country: US (occurrence: US)
  Receive Date: 20190918
  Receipt Date: 20190918
  Transmission Date: 20191005
  Serious: No
  Sender: FDA-Public Use
  Company Number: US-PFIZER INC-2019397208

PATIENT
  Age: 47 Year
  Sex: Male
  Weight: 72.57 kg

DRUGS (3)
  1. CHANTIX [Suspect]
     Active Substance: VARENICLINE TARTRATE
     Dosage: UNK
  2. VIAGRA [Suspect]
     Active Substance: SILDENAFIL CITRATE
     Dosage: 400 MG, UNK (FOUR 100MG, TABLETS)
     Route: 048
  3. MOTRIN [Suspect]
     Active Substance: IBUPROFEN
     Dosage: 800 MG, 1X/DAY
     Route: 048

REACTIONS (2)
  - Accidental overdose [Not Recovered/Not Resolved]
  - Erection increased [Not Recovered/Not Resolved]

NARRATIVE: CASE EVENT DATE: 20190911
